FAERS Safety Report 4924543-7 (Version None)
Quarter: 2006Q1

REPORT INFORMATION
  Report Type: 
  Country: None (occurrence: None)
  Receive Date: 20060222
  Receipt Date: 20060214
  Transmission Date: 20060701
  Serious: Yes (Death, Hospitalization)
  Sender: FDA-Public Use
  Company Number: STA-AE-06-002

PATIENT
  Age: 59 Year
  Sex: Male

DRUGS (2)
  1. AMOXICILLIN [Suspect]
     Indication: ERYTHEMA
     Dosage: 3 X 500 MG/ 1 DAY (S)
  2. AMOXICILLIN + CLAVULANATE POTASSIUM [Suspect]
     Indication: CELLULITIS
     Dosage: 2 DF PER DAY

REACTIONS (10)
  - COAGULOPATHY [None]
  - ERYTHEMA [None]
  - HEPATIC ENCEPHALOPATHY [None]
  - HEPATIC FAILURE [None]
  - HEPATIC NECROSIS [None]
  - HEPATITIS ACUTE [None]
  - HYPOTENSION [None]
  - INTERNATIONAL NORMALISED RATIO INCREASED [None]
  - MULTI-ORGAN FAILURE [None]
  - RESPIRATORY FAILURE [None]
